FAERS Safety Report 8239907-6 (Version None)
Quarter: 2012Q1

REPORT INFORMATION
  Report Type: 
  Country: None (occurrence: None)
  Receive Date: 20120327
  Receipt Date: 20120327
  Transmission Date: 20120608
  Serious: Yes (Death)
  Sender: FDA-Public Use
  Company Number: None

PATIENT
  Sex: Male
  Weight: 76.8 kg

DRUGS (2)
  1. NALTREXONE HYDROCHLORIDE [Suspect]
     Indication: PROPHYLAXIS
     Dosage: 380MG 1X/MONTH IM INJ. (030)
     Route: 030
     Dates: start: 20110519, end: 20111012
  2. NALTREXONE HYDROCHLORIDE [Suspect]
     Indication: DRUG ABUSE
     Dosage: 380MG 1X/MONTH IM INJ. (030)
     Route: 030
     Dates: start: 20110519, end: 20111012

REACTIONS (1)
  - DEATH [None]
